FAERS Safety Report 6015877-6 (Version None)
Quarter: 2008Q4

REPORT INFORMATION
  Report Type: 
  Country: None (occurrence: None)
  Receive Date: 20081222
  Receipt Date: 20081219
  Transmission Date: 20090506
  Serious: Yes (Death, Hospitalization)
  Sender: FDA-Public Use
  Company Number: A0761191A

PATIENT
  Age: 68 Year
  Sex: Male
  Weight: 141.4 kg

DRUGS (15)
  1. AVANDIA [Suspect]
     Dosage: 4MG TWICE PER DAY
     Route: 048
     Dates: start: 20030101, end: 20061213
  2. GLYBURIDE [Concomitant]
  3. TOPROL-XL [Concomitant]
  4. PREDNISONE [Concomitant]
  5. MEDROL [Concomitant]
  6. ALBUTEROL [Concomitant]
  7. LIPITOR [Concomitant]
  8. LIPITOR [Concomitant]
  9. ATIVAN [Concomitant]
  10. WELLBUTRIN [Concomitant]
  11. ZOLOFT [Concomitant]
  12. CELEBREX [Concomitant]
  13. VIOXX [Concomitant]
  14. BEXTRA [Concomitant]
  15. VITAMIN [Concomitant]

REACTIONS (6)
  - CARDIAC FAILURE CONGESTIVE [None]
  - CEREBROVASCULAR ACCIDENT [None]
  - DEATH [None]
  - RENAL FAILURE [None]
  - RESPIRATORY FAILURE [None]
  - WEIGHT INCREASED [None]
